FAERS Safety Report 18973543 (Version 1)
Quarter: 2021Q1

REPORT INFORMATION
  Report Type: Spontaneous
  Country: DE (occurrence: DE)
  Receive Date: 20210305
  Receipt Date: 20210305
  Transmission Date: 20210420
  Serious: Yes (Hospitalization)
  Sender: FDA-Public Use
  Company Number: DE-TEVA-2021-DE-1886508

PATIENT
  Age: 33 Year
  Sex: Male

DRUGS (1)
  1. FINASTERID [Suspect]
     Active Substance: FINASTERIDE
     Indication: ALOPECIA
     Dosage: USE FOR OVER 10 YEARS
     Dates: end: 202010

REACTIONS (3)
  - Drug withdrawal syndrome [Unknown]
  - Depression [Unknown]
  - Muscle twitching [Unknown]
